FAERS Safety Report 18696670 (Version 1)
Quarter: 2021Q1

REPORT INFORMATION
  Report Type: Other
  Country: US (occurrence: US)
  Receive Date: 20210104
  Receipt Date: 20210104
  Transmission Date: 20210419
  Serious: No
  Sender: FDA-Public Use
  Company Number: US-ROCHE-2582754

PATIENT
  Age: 49 Year
  Sex: Male

DRUGS (5)
  1. HYDROXYCHLOROQUINE [Concomitant]
     Active Substance: HYDROXYCHLOROQUINE
     Route: 065
  2. AZITHROMYCIN ANHYDROUS. [Concomitant]
     Active Substance: AZITHROMYCIN ANHYDROUS
     Route: 065
  3. ACTIVASE [Suspect]
     Active Substance: ALTEPLASE
     Indication: CORONAVIRUS INFECTION
     Dosage: A 25MG INTRAVENOUS BOLUS OVER 2 HOURS
     Route: 040
  4. ACTIVASE [Suspect]
     Active Substance: ALTEPLASE
     Indication: ACUTE RESPIRATORY DISTRESS SYNDROME
     Dosage: FOLLOWED BY A 25MG TPA INFUSION OVER THE SUBSEQUENT 22 HOURS.
     Route: 041
  5. HEPARIN [Concomitant]
     Active Substance: HEPARIN SODIUM
     Route: 041

REACTIONS (3)
  - Off label use [Unknown]
  - Intentional product use issue [Unknown]
  - No adverse event [Unknown]
